FAERS Safety Report 7409132-7 (Version None)
Quarter: 2011Q2

REPORT INFORMATION
  Report Type: 
  Country: None (occurrence: None)
  Receive Date: 20110412
  Receipt Date: 20110405
  Transmission Date: 20111010
  Serious: Yes (Disabling)
  Sender: FDA-Public Use
  Company Number: DE-ROCHE-762399

PATIENT
  Sex: Female
  Weight: 79 kg

DRUGS (5)
  1. EUTHYROX [Concomitant]
     Indication: HYPOTHYROIDISM
     Dosage: FREQUENCY : 50 MG MORNING
     Route: 048
     Dates: start: 20090101
  2. MAGALDRAT [Concomitant]
     Dosage: FREQUENCY :  800 MG AS REQUIRED.
     Route: 048
  3. RIVOTRIL [Suspect]
     Indication: EPILEPSY
     Dosage: INTAKE FOR YEARS
     Route: 048
     Dates: start: 19900101
  4. LAMOTRIGINE [Suspect]
     Indication: EPILEPSY
     Dosage: UNITS NOT REPORTED : 100 DAILY.
     Route: 048
     Dates: start: 20050101
  5. VALPROATE SODIUM [Suspect]
     Indication: EPILEPSY
     Route: 048
     Dates: start: 20050101

REACTIONS (1)
  - GASTRITIS [None]
